FAERS Safety Report 8459437-6 (Version None)
Quarter: 2012Q2

REPORT INFORMATION
  Report Type: 
  Country: None (occurrence: None)
  Receive Date: 20120622
  Receipt Date: 20120620
  Transmission Date: 20120825
  Serious: Yes (Other)
  Sender: FDA-Public Use
  Company Number: IE-PFIZER INC-2012118489

PATIENT
  Age: 68 Year
  Sex: Male
  Weight: 80 kg

DRUGS (6)
  1. RAMIPRIL [Concomitant]
     Indication: HYPERTENSION
     Dosage: UNK
     Dates: start: 20120109
  2. RASILEZ [Concomitant]
     Indication: HYPERTENSION
     Dosage: UNK
     Dates: start: 20101001, end: 20120109
  3. VARENICLINE TARTRATE [Suspect]
     Indication: SMOKING CESSATION THERAPY
     Dosage: UNK
     Dates: start: 20111001, end: 20111201
  4. INDAPAMIDE [Concomitant]
     Dosage: UNK
     Dates: start: 20120305
  5. SPIRONOLACTONE [Concomitant]
     Dosage: UNK
  6. AMLODIPINE [Concomitant]
     Indication: HYPERTENSION
     Dosage: UNK
     Dates: start: 20120104

REACTIONS (6)
  - NIGHTMARE [None]
  - ANHEDONIA [None]
  - DEPRESSION [None]
  - CRYING [None]
  - INSOMNIA [None]
  - DISTURBANCE IN ATTENTION [None]
